FAERS Safety Report 19104693 (Version 2)
Quarter: 2021Q2

REPORT INFORMATION
  Report Type: Other
  Country: IT (occurrence: IT)
  Receive Date: 20210408
  Receipt Date: 20210512
  Transmission Date: 20210717
  Serious: Yes (Other)
  Sender: FDA-Public Use
  Company Number: IT-CELLTRION INC.-2021IT004378

PATIENT

DRUGS (6)
  1. BENDAMUSTINE HYDROCHLORIDE. [Suspect]
     Active Substance: BENDAMUSTINE HYDROCHLORIDE
     Indication: NON-HODGKIN^S LYMPHOMA
     Dosage: 77.85 MILLIGRAM, CYCLIC
     Route: 042
     Dates: start: 20180906, end: 20181031
  2. EVEROLIMUS. [Suspect]
     Active Substance: EVEROLIMUS
     Indication: NON-HODGKIN^S LYMPHOMA
     Dosage: 648.8 MG, CYCLIC
     Route: 042
     Dates: start: 20180913, end: 20181030
  3. GRANISETRON [Concomitant]
     Active Substance: GRANISETRON
     Indication: NON-HODGKIN^S LYMPHOMA
     Dosage: 3 MG
     Dates: start: 20180906, end: 20181031
  4. RITUXIMAB (UNKNOWN) [Suspect]
     Active Substance: RITUXIMAB
     Indication: NON-HODGKIN^S LYMPHOMA
     Dosage: 648.8 MG, CYCLIC
     Route: 042
     Dates: start: 20180906
  5. CHLORPHENAMINE [Concomitant]
     Active Substance: CHLORPHENIRAMINE MALEATE
     Indication: NON-HODGKIN^S LYMPHOMA
     Dosage: 10 MG
     Route: 042
     Dates: start: 20180913, end: 20181030
  6. HYDROCORTISONE. [Concomitant]
     Active Substance: HYDROCORTISONE
     Indication: NON-HODGKIN^S LYMPHOMA
     Dosage: 100 MG
     Route: 040
     Dates: start: 20180913, end: 20181030

REACTIONS (3)
  - Hyperthermia [Recovered/Resolved]
  - Sepsis [Recovered/Resolved]
  - Infusion related reaction [Recovered/Resolved]

NARRATIVE: CASE EVENT DATE: 20200806
